FAERS Safety Report 4552281-1 (Version None)
Quarter: 2005Q1

REPORT INFORMATION
  Report Type: 
  Country: None (occurrence: None)
  Receive Date: 20050112
  Receipt Date: 20050112
  Transmission Date: 20050727
  Serious: Yes (Hospitalization)
  Sender: FDA-Public Use
  Company Number: None

PATIENT
  Age: 26 Year
  Sex: Female
  Weight: 55.3388 kg

DRUGS (2)
  1. PAXIL [Suspect]
     Indication: ANXIETY
     Dosage: 12.5 MG   ONCE A DAY   ORAL
     Route: 048
     Dates: start: 20041129, end: 20050112
  2. PAXIL [Suspect]
     Indication: EAR PAIN
     Dosage: 12.5 MG   ONCE A DAY   ORAL
     Route: 048
     Dates: start: 20041129, end: 20050112

REACTIONS (11)
  - ANXIETY [None]
  - APATHY [None]
  - CONFUSIONAL STATE [None]
  - DIZZINESS [None]
  - DRUG WITHDRAWAL SYNDROME [None]
  - FEAR [None]
  - FEELING ABNORMAL [None]
  - MENTAL DISORDER [None]
  - MIGRAINE [None]
  - SELF-INJURIOUS IDEATION [None]
  - SUICIDAL IDEATION [None]
